FAERS Safety Report 11624592 (Version 1)
Quarter: 2015Q4

REPORT INFORMATION
  Report Type: Report from Study
  Country: DE (occurrence: DE)
  Receive Date: 20151013
  Receipt Date: 20151013
  Transmission Date: 20160304
  Serious: Yes (Other)
  Sender: FDA-Public Use
  Company Number: PHHY2015DE121843

PATIENT
  Sex: Female
  Weight: 84 kg

DRUGS (8)
  1. GILENYA [Suspect]
     Active Substance: FINGOLIMOD HYDROCHLORIDE
     Indication: MULTIPLE SCLEROSIS
     Dosage: 0.5 MG, QD
     Route: 048
     Dates: start: 20110817
  2. IBUPROFEN. [Concomitant]
     Active Substance: IBUPROFEN
     Indication: HEADACHE
     Dosage: 400 MG, PRN
     Route: 048
     Dates: start: 201303
  3. IBUPROFEN. [Concomitant]
     Active Substance: IBUPROFEN
     Indication: MOBILITY DECREASED
  4. GABAPENTIN. [Concomitant]
     Active Substance: GABAPENTIN
     Indication: PRODUCT USED FOR UNKNOWN INDICATION
     Dosage: UNK
     Route: 065
  5. FERRO SANOL DUODENAL [Concomitant]
     Active Substance: FERROUS SULFATE\GLYCINE
     Indication: IRON DEFICIENCY
     Dosage: 100 MG, TID
     Route: 048
     Dates: start: 201309, end: 201311
  6. IBUPROFEN. [Concomitant]
     Active Substance: IBUPROFEN
     Indication: MUSCULOSKELETAL PAIN
  7. IBUPROFEN. [Concomitant]
     Active Substance: IBUPROFEN
     Indication: BACK PAIN
     Dosage: 400 MG, PRN
     Route: 048
     Dates: start: 20131109, end: 201312
  8. IBUPROFEN. [Concomitant]
     Active Substance: IBUPROFEN
     Indication: NASOPHARYNGITIS
     Dosage: 400 MG, PRN
     Route: 048
     Dates: end: 20120207

REACTIONS (1)
  - Hypertensive crisis [Not Recovered/Not Resolved]

NARRATIVE: CASE EVENT DATE: 20150930
